FAERS Safety Report 4364868-X (Version None)
Quarter: 2004Q2

REPORT INFORMATION
  Report Type: 
  Country: None (occurrence: None)
  Receive Date: 20040514
  Receipt Date: 20030820
  Transmission Date: 20050107
  Serious: Yes (Other)
  Sender: FDA-Public Use
  Company Number: WAES 0308USA02044

PATIENT
  Age: 40 Year
  Sex: Male

DRUGS (1)
  1. CRIXIVAN [Suspect]
     Dosage: UNK/Q8H/PO
     Route: 048
     Dates: start: 19960101

REACTIONS (2)
  - ANGINA PECTORIS [None]
  - BLOOD CHOLESTEROL INCREASED [None]
